FAERS Safety Report 19372860 (Version 1)
Quarter: 2021Q2

REPORT INFORMATION
  Report Type: Spontaneous
  Country: CN (occurrence: CN)
  Receive Date: 20210603
  Receipt Date: 20210603
  Transmission Date: 20210717
  Serious: Yes (Other)
  Sender: FDA-Public Use
  Company Number: NVSC2021CN122275

PATIENT

DRUGS (1)
  1. ACLASTA [Suspect]
     Active Substance: ZOLEDRONIC ACID
     Indication: PRODUCT USED FOR UNKNOWN INDICATION
     Dosage: 5 MG/100 ML, UNKNOWN
     Route: 041
     Dates: start: 20210521, end: 20210521

REACTIONS (3)
  - Hyperpyrexia [Unknown]
  - Rash [Unknown]
  - Arthralgia [Unknown]
